FAERS Safety Report 10472739 (Version 1)
Quarter: 2014Q3

REPORT INFORMATION
  Report Type: Spontaneous
  Country: US (occurrence: US)
  Receive Date: 20140924
  Receipt Date: 20140924
  Transmission Date: 20150326
  Serious: No
  Sender: FDA-Public Use
  Company Number: US-BANPHARM-20142837

PATIENT
  Age: 54 Year
  Sex: Male
  Weight: 52.16 kg

DRUGS (1)
  1. LOPERAMIDE HCL [Suspect]
     Active Substance: LOPERAMIDE HYDROCHLORIDE
     Indication: DIARRHOEA
     Dosage: 1 DF, ONCE
     Dates: start: 20140625, end: 20140625

REACTIONS (2)
  - Paraesthesia oral [Recovered/Resolved]
  - Product taste abnormal [Recovered/Resolved]

NARRATIVE: CASE EVENT DATE: 20140625
